FAERS Safety Report 18846556 (Version 1)
Quarter: 2021Q1

REPORT INFORMATION
  Report Type: Spontaneous
  Country: US (occurrence: US)
  Receive Date: 20210204
  Receipt Date: 20210204
  Transmission Date: 20210419
  Serious: Yes (Hospitalization)
  Sender: FDA-Public Use
  Company Number: US-SAOL THERAPEUTICS-2020SAO00495

PATIENT
  Age: 49 Year
  Sex: Female
  Weight: 57.6 kg

DRUGS (8)
  1. MORPHINE [Suspect]
     Active Substance: MORPHINE
     Indication: MULTIPLE SCLEROSIS
  2. LIORESAL [Suspect]
     Active Substance: BACLOFEN
     Indication: MULTIPLE SCLEROSIS
  3. LIORESAL [Suspect]
     Active Substance: BACLOFEN
     Indication: MULTIPLE SCLEROSIS
  4. MORPHINE [Suspect]
     Active Substance: MORPHINE
     Indication: MUSCLE SPASTICITY
     Dosage: 0.59 MG, \DAY (ASSOC WITH CURRENT CONCENTRATION 1.9 MG/ML)
     Route: 037
  5. LIORESAL [Suspect]
     Active Substance: BACLOFEN
     Indication: MUSCLE SPASTICITY
     Dosage: 539.4 ?G, \DAY (ASSOCIATED WITH NEW CONCENTRATION 1635 ?G/ML)
     Route: 037
  6. LIORESAL [Suspect]
     Active Substance: BACLOFEN
     Indication: MUSCLE SPASTICITY
     Dosage: 530 ?G, \DAY (ASSOCIATED WITH CURRENT CONCENTRAITON 1700 ?G/ML)
     Route: 037
  7. MORPHINE [Suspect]
     Active Substance: MORPHINE
     Indication: MUSCLE SPASTICITY
     Dosage: 0.59 MG, \DAY (ASSOC WITH NEW CONCENTRATION 1.8 MG/ML)
     Route: 037
  8. MORPHINE [Suspect]
     Active Substance: MORPHINE
     Indication: MULTIPLE SCLEROSIS

REACTIONS (4)
  - Pain [Recovered/Resolved]
  - Drug withdrawal syndrome [Recovered/Resolved]
  - Tremor [Recovered/Resolved]
  - Urinary tract infection [Recovered/Resolved]

NARRATIVE: CASE EVENT DATE: 20201112
